FAERS Safety Report 4339354-3 (Version None)
Quarter: 2004Q2

REPORT INFORMATION
  Report Type: 
  Country: None (occurrence: None)
  Receive Date: 20040414
  Receipt Date: 20040414
  Transmission Date: 20050107
  Serious: Yes (Hospitalization)
  Sender: FDA-Public Use
  Company Number: None

PATIENT
  Age: 20 Year
  Sex: Male
  Weight: 72.57 kg

DRUGS (1)
  1. RISPERDAL [Suspect]
     Dosage: 2 MG DAILY ORAL
     Route: 048
     Dates: start: 20030328, end: 20040328

REACTIONS (2)
  - PHIMOSIS [None]
  - PRIAPISM [None]
